FAERS Safety Report 9412335 (Version 1)
Quarter: 2013Q3

REPORT INFORMATION
  Report Type: Spontaneous
  Country: US (occurrence: US)
  Receive Date: 20130722
  Receipt Date: 20130722
  Transmission Date: 20140515
  Serious: No
  Sender: FDA-Public Use
  Company Number: US-009507513-1307USA011803

PATIENT
  Sex: Male

DRUGS (2)
  1. CORICIDIN HBP CHEST CONGESTION AND COUGH [Suspect]
     Indication: STRESS
     Dosage: UNK, UNKNOWN
     Route: 048
  2. ALCOHOL [Suspect]
     Indication: STRESS
     Dosage: UNK, UNKNOWN

REACTIONS (2)
  - Intentional overdose [Not Recovered/Not Resolved]
  - Off label use [Not Recovered/Not Resolved]
